FAERS Safety Report 6522059-8 (Version None)
Quarter: 2009Q4

REPORT INFORMATION
  Report Type: 
  Country: None (occurrence: None)
  Receive Date: 20091230
  Receipt Date: 20091228
  Transmission Date: 20100525
  Serious: Yes (Death, Hospitalization)
  Sender: FDA-Public Use
  Company Number: US-KINGPHARMUSA00001-K200901609

PATIENT
  Age: 48 Year
  Sex: Female

DRUGS (4)
  1. SKELAXIN [Suspect]
     Indication: COMPLETED SUICIDE
     Dosage: UNK
     Route: 048
  2. ACETAMINOPHEN AND HYDROCODONE BITARTRATE [Suspect]
     Indication: COMPLETED SUICIDE
     Dosage: UNK
     Route: 048
  3. TRAZODONE [Suspect]
     Indication: COMPLETED SUICIDE
     Dosage: UNK
     Route: 048
  4. ETHANOL [Suspect]
     Indication: COMPLETED SUICIDE
     Dosage: UNK
     Route: 048

REACTIONS (2)
  - CARDIO-RESPIRATORY ARREST [None]
  - COMPLETED SUICIDE [None]
